FAERS Safety Report 6730306-2 (Version None)
Quarter: 2010Q2

REPORT INFORMATION
  Report Type: 
  Country: None (occurrence: None)
  Receive Date: 20100514
  Receipt Date: 20100429
  Transmission Date: 20101027
  Serious: Yes (Other)
  Sender: FDA-Public Use
  Company Number: AMAG201000223

PATIENT
  Age: 39 Year
  Sex: Female
  Weight: 98.4 kg

DRUGS (11)
  1. FERAHEME [Suspect]
     Indication: TRANSFERRIN SATURATION DECREASED
     Dosage: 510 MG, SINGLE, INTRAVENOUS
     Route: 042
     Dates: start: 20100429, end: 20100429
  2. MINOXIDIL [Concomitant]
  3. EPOGEN [Concomitant]
  4. CALCITRIOL [Concomitant]
  5. DILANTIN [Concomitant]
  6. TUMS (CALCIUM CARBONATE) [Concomitant]
  7. TYLENOL (PARACETAMOL) [Concomitant]
  8. PHENERGAN HCL [Concomitant]
  9. LABETALOL HCI (LABETALOL HYDROCHLORIDE) [Concomitant]
  10. PROTONIX [Concomitant]
  11. LAMICTAL [Concomitant]

REACTIONS (9)
  - BLOOD PRESSURE INCREASED [None]
  - CONVULSION [None]
  - DIZZINESS [None]
  - HEART RATE INCREASED [None]
  - HYPERTENSION [None]
  - LACK OF SPONTANEOUS SPEECH [None]
  - OROPHARYNGEAL PAIN [None]
  - ORTHOSTATIC HYPOTENSION [None]
  - SOMNOLENCE [None]
